FAERS Safety Report 5092498-3 (Version None)
Quarter: 2006Q3

REPORT INFORMATION
  Report Type: 
  Country: None (occurrence: None)
  Receive Date: 20060823
  Receipt Date: 20060811
  Transmission Date: 20061208
  Serious: Yes (Hospitalization)
  Sender: FDA-Public Use
  Company Number: 2006BH007370

PATIENT
  Age: 9 Year
  Sex: Male
  Weight: 33 kg

DRUGS (2)
  1. ADVATE [Suspect]
     Indication: FACTOR VIII DEFICIENCY
     Dosage: 40 IU/KG; 3X A WEEK;
  2. PEPCID AC [Concomitant]

REACTIONS (3)
  - CATHETER SITE CELLULITIS [None]
  - CATHETER SITE HAEMATOMA [None]
  - SYNOVITIS [None]
